FAERS Safety Report 8037050-2 (Version None)
Quarter: 2012Q1

REPORT INFORMATION
  Report Type: 
  Country: None (occurrence: None)
  Receive Date: 20120106
  Receipt Date: 20111221
  Transmission Date: 20120608
  Serious: Yes (Other)
  Sender: FDA-Public Use
  Company Number: 1000026709

PATIENT
  Age: 67 Year
  Sex: Female

DRUGS (5)
  1. VIIBRYD [Suspect]
     Indication: DEPRESSION
     Dosage: 40 MG (40 MG, 1 IN 1 D), ORAL
     Route: 048
     Dates: start: 20111001, end: 20111001
  2. XANAX [Concomitant]
  3. LISINOPRIL/HCTZ (LISINOPRIL, HYDROCHLOROTHIAZIDE) [Concomitant]
  4. VIIBRYD [Suspect]
     Indication: DEPRESSION
     Dosage: 10;20 MG (10 MG, 1 IN 1 D), ORAL
     Route: 048
     Dates: start: 20111001, end: 20111001
  5. TRAMADOL HCL [Concomitant]

REACTIONS (1)
  - SUICIDE ATTEMPT [None]
